FAERS Safety Report 6772278-0 (Version None)
Quarter: 2010Q2

REPORT INFORMATION
  Report Type: 
  Country: None (occurrence: None)
  Receive Date: 20100616
  Receipt Date: 20090728
  Transmission Date: 20101027
  Serious: No
  Sender: FDA-Public Use
  Company Number: US-ASTRAZENECA-2009UW09063

PATIENT
  Sex: Male

DRUGS (1)
  1. BUDESONIDE [Suspect]
     Indication: ASTHMA
     Route: 055

REACTIONS (3)
  - COUGH [None]
  - DRUG INEFFECTIVE [None]
  - DYSPNOEA [None]
